FAERS Safety Report 6429240-7 (Version None)
Quarter: 2009Q4

REPORT INFORMATION
  Report Type: 
  Country: None (occurrence: None)
  Receive Date: 20091105
  Receipt Date: 20091023
  Transmission Date: 20100525
  Serious: Yes (Hospitalization)
  Sender: FDA-Public Use
  Company Number: PHHY2009JP44983

PATIENT
  Sex: Male

DRUGS (3)
  1. ZOMETA [Suspect]
     Indication: METASTASES TO BONE
     Dosage: 4 MG, QMO
     Route: 042
     Dates: start: 20071013
  2. ZOMETA [Suspect]
     Indication: PROSTATE CANCER
  3. DOCETAXEL [Suspect]
     Indication: PROSTATE CANCER
     Dosage: 120 MG, QMO
     Route: 042
     Dates: start: 20071011

REACTIONS (4)
  - CARDIAC FAILURE [None]
  - DIARRHOEA [None]
  - VOMITING [None]
  - WHITE BLOOD CELL COUNT DECREASED [None]
